FAERS Safety Report 9998975 (Version 2)
Quarter: 2014Q2

REPORT INFORMATION
  Report Type: Spontaneous
  Country: US (occurrence: US)
  Receive Date: 20140312
  Receipt Date: 20140509
  Transmission Date: 20141212
  Serious: Yes (Hospitalization, Other)
  Sender: FDA-Public Use
  Company Number: US-BEH-2014040974

PATIENT
  Age: 48 Year
  Sex: Female

DRUGS (14)
  1. HIZENTRA [Suspect]
     Route: 058
  2. GAMMAGARD [Suspect]
     Dosage: 350 ML VIAL
     Route: 042
  3. GAMMAGARD [Suspect]
     Route: 058
  4. GAMMAGARD [Suspect]
     Route: 058
  5. GAMMAGARD [Suspect]
     Route: 058
  6. PRAVASTATIN [Concomitant]
     Route: 048
  7. XANAX [Concomitant]
     Route: 048
  8. PAXIL [Concomitant]
     Route: 048
  9. PAXIL [Concomitant]
  10. METHOCARBAMOL [Concomitant]
  11. METFORMIN [Concomitant]
     Route: 048
  12. SYMBICORT [Concomitant]
     Route: 048
  13. NASONEX [Concomitant]
     Route: 045
  14. NOVOLIN R [Concomitant]

REACTIONS (15)
  - Cellulitis [Not Recovered/Not Resolved]
  - Pleurisy [Unknown]
  - Influenza [Unknown]
  - Bronchitis [Not Recovered/Not Resolved]
  - Condition aggravated [Unknown]
  - Sinusitis [Not Recovered/Not Resolved]
  - Asthenia [Unknown]
  - Hypersensitivity [Unknown]
  - Malaise [Not Recovered/Not Resolved]
  - Blood pressure increased [Unknown]
  - Musculoskeletal chest pain [Unknown]
  - Chest discomfort [Unknown]
  - Pyrexia [Unknown]
  - Pyrexia [Unknown]
  - Arthralgia [Unknown]
